FAERS Safety Report 21216537 (Version 1)
Quarter: 2022Q3

REPORT INFORMATION
  Report Type: Report from Study
  Country: CL (occurrence: CL)
  Receive Date: 20220816
  Receipt Date: 20220816
  Transmission Date: 20221026
  Serious: Yes (Other)
  Sender: FDA-Public Use
  Company Number: CL-JNJFOC-20220818505

PATIENT
  Sex: Female

DRUGS (1)
  1. SIMPONI [Suspect]
     Active Substance: GOLIMUMAB
     Indication: Psoriatic arthropathy
     Route: 058
     Dates: start: 20210503

REACTIONS (5)
  - Nephrolithiasis [Unknown]
  - Hypothyroidism [Unknown]
  - Renal neoplasm [Unknown]
  - Nasopharyngitis [Unknown]
  - Respiratory disorder [Unknown]
